FAERS Safety Report 7322813-9 (Version None)
Quarter: 2011Q1

REPORT INFORMATION
  Report Type: 
  Country: None (occurrence: None)
  Receive Date: 20110215
  Receipt Date: 20110201
  Transmission Date: 20110831
  Serious: No
  Sender: FDA-Public Use
  Company Number: 026692

PATIENT
  Sex: Female

DRUGS (6)
  1. NORVASC [Concomitant]
  2. IZOFRAN /00955301/ [Concomitant]
  3. VALIUM [Concomitant]
  4. KEPPRA [Suspect]
     Indication: CONVULSION
     Dosage: (750 MG BID ORAL), (750 MG ORAL)
     Route: 048
     Dates: start: 20110201
  5. KEPPRA [Suspect]
     Indication: CONVULSION
     Dosage: (750 MG BID ORAL), (750 MG ORAL)
     Route: 048
     Dates: end: 20110131
  6. DEPAKOTE [Concomitant]

REACTIONS (2)
  - INCORRECT DOSE ADMINISTERED [None]
  - DRUG ADMINISTRATION ERROR [None]
